FAERS Safety Report 13940116 (Version 1)
Quarter: 2017Q3

REPORT INFORMATION
  Report Type: Spontaneous
  Country: CN (occurrence: CN)
  Receive Date: 20170906
  Receipt Date: 20170906
  Transmission Date: 20171127
  Serious: Yes (Hospitalization)
  Sender: FDA-Public Use
  Company Number: CN-BAYER-2017-163862

PATIENT
  Age: 79 Year
  Sex: Female

DRUGS (1)
  1. AVELOX [Suspect]
     Active Substance: MOXIFLOXACIN HYDROCHLORIDE
     Dosage: UNK

REACTIONS (10)
  - Dysarthria [None]
  - Eye disorder [None]
  - Infusion site pruritus [None]
  - Hypoaesthesia oral [None]
  - Balance disorder [None]
  - Hallucination [None]
  - Aphasia [None]
  - Speech disorder [None]
  - Depressed level of consciousness [None]
  - Mental disorder [None]

NARRATIVE: CASE EVENT DATE: 20170825
